FAERS Safety Report 19460747 (Version 1)
Quarter: 2021Q2

REPORT INFORMATION
  Report Type: Spontaneous
  Country: US (occurrence: US)
  Receive Date: 20210625
  Receipt Date: 20210625
  Transmission Date: 20210717
  Serious: Yes (Life-Threatening, Hospitalization)
  Sender: FDA-Public Use
  Company Number: US-HIKMA PHARMACEUTICALS USA INC.-US-H14001-21-02884

PATIENT
  Age: 16 Year
  Sex: Male

DRUGS (8)
  1. METRONIDAZOLE. [Concomitant]
     Active Substance: METRONIDAZOLE
     Indication: PRODUCT USED FOR UNKNOWN INDICATION
     Dosage: UNKNOWN
     Route: 065
     Dates: start: 20210530
  2. PEGASPARGASE [Suspect]
     Active Substance: PEGASPARGASE
     Indication: ACUTE LYMPHOCYTIC LEUKAEMIA
     Route: 042
     Dates: start: 20201207
  3. INCB018424 [Suspect]
     Active Substance: RUXOLITINIB
     Indication: ACUTE LYMPHOCYTIC LEUKAEMIA
     Route: 048
     Dates: start: 20201121
  4. METHOTREXATE. [Suspect]
     Active Substance: METHOTREXATE
     Indication: ACUTE LYMPHOCYTIC LEUKAEMIA
     Dosage: DAY 1
     Route: 039
     Dates: start: 20201121
  5. DOXORUBICIN [Suspect]
     Active Substance: DOXORUBICIN
     Indication: ACUTE LYMPHOCYTIC LEUKAEMIA
     Dosage: DAY 1 8 15
     Route: 042
     Dates: start: 20210510
  6. ACICLOVIR [Concomitant]
     Active Substance: ACYCLOVIR
     Indication: PRODUCT USED FOR UNKNOWN INDICATION
     Dosage: UNKNOWN
     Route: 065
     Dates: start: 20210529
  7. DEXAMETHASONE. [Suspect]
     Active Substance: DEXAMETHASONE
     Indication: ACUTE LYMPHOCYTIC LEUKAEMIA
     Route: 048
     Dates: start: 20210510
  8. VINCRISTINE [Suspect]
     Active Substance: VINCRISTINE
     Indication: ACUTE LYMPHOCYTIC LEUKAEMIA
     Route: 042
     Dates: start: 20201207

REACTIONS (23)
  - Nausea [Unknown]
  - Lipase increased [Unknown]
  - Haematocrit increased [Unknown]
  - Pneumocystis jirovecii pneumonia [Unknown]
  - Pleural effusion [Unknown]
  - Condition aggravated [Recovering/Resolving]
  - Seizure [Unknown]
  - Amylase increased [Unknown]
  - Transaminases increased [Unknown]
  - Blood triglycerides increased [Unknown]
  - Acute kidney injury [Unknown]
  - Pyrexia [Unknown]
  - Pancreatitis acute [Unknown]
  - Abdominal pain [Recovering/Resolving]
  - Blood pressure increased [Unknown]
  - Cytopenia [Unknown]
  - Tachycardia [Unknown]
  - Lactic acidosis [Unknown]
  - Neutropenia [Recovering/Resolving]
  - Ascites [Unknown]
  - Pancreatitis [Recovered/Resolved]
  - Tenderness [Unknown]
  - Systemic inflammatory response syndrome [Unknown]

NARRATIVE: CASE EVENT DATE: 20210529
